FAERS Safety Report 8048129-3 (Version None)
Quarter: 2012Q1

REPORT INFORMATION
  Report Type: 
  Country: None (occurrence: None)
  Receive Date: 20120112
  Receipt Date: 20120112
  Transmission Date: 20120608
  Serious: No
  Sender: FDA-Public Use
  Company Number: None

PATIENT
  Sex: Female
  Weight: 117.4816 kg

DRUGS (1)
  1. NOVOLOG [Suspect]
     Indication: BLOOD INSULIN
     Dosage: NOVOLOG 3X/D WITH MEALS SQ
     Route: 058
     Dates: start: 20101201

REACTIONS (3)
  - PRURITUS [None]
  - RASH [None]
  - INJECTION SITE PAIN [None]
